FAERS Safety Report 9812370 (Version 1)
Quarter: 2014Q1

REPORT INFORMATION
  Report Type: Spontaneous
  Country: US (occurrence: US)
  Receive Date: 20140113
  Receipt Date: 20140113
  Transmission Date: 20141002
  Serious: No
  Sender: FDA-Public Use
  Company Number: US-009507513-1401USA001685

PATIENT
  Sex: Female

DRUGS (8)
  1. VICTRELIS [Suspect]
     Indication: HEPATITIS C
     Dosage: 800 MGS THREE TIMES A DAY
     Route: 048
     Dates: start: 20130805
  2. REBETOL [Suspect]
     Route: 048
  3. PEGASYS [Suspect]
  4. PRINZIDE [Concomitant]
     Route: 048
  5. METFORMIN [Concomitant]
  6. VITAMIN D (UNSPECIFIED) [Concomitant]
  7. ZOFRAN [Concomitant]
  8. PREVACID [Concomitant]

REACTIONS (4)
  - Dyspepsia [Not Recovered/Not Resolved]
  - Weight decreased [Not Recovered/Not Resolved]
  - Decreased appetite [Not Recovered/Not Resolved]
  - Nausea [Not Recovered/Not Resolved]
